FAERS Safety Report 7487314-6 (Version None)
Quarter: 2011Q1

REPORT INFORMATION
  Report Type: 
  Country: None (occurrence: None)
  Receive Date: 20110309
  Receipt Date: 20101222
  Transmission Date: 20110831
  Serious: No
  Sender: FDA-Public Use
  Company Number: 2010SP065917

PATIENT
  Age: 40 Year
  Sex: Female

DRUGS (23)
  1. SAPHRIS [Suspect]
     Indication: PRODUCT USED FOR UNKNOWN INDICATION
     Dosage: 5 MG; HS
     Dates: start: 20101101, end: 20101201
  2. GEODON [Suspect]
     Indication: BIPOLAR DISORDER
     Dosage: 20 MG; QD; PO, PO, PO, 40 MG; QD; PO
     Route: 048
     Dates: start: 20100501, end: 20101101
  3. GEODON [Suspect]
     Indication: PSYCHOTIC DISORDER
     Dosage: 20 MG; QD; PO, PO, PO, 40 MG; QD; PO
     Route: 048
     Dates: start: 20100501, end: 20101101
  4. GEODON [Suspect]
     Indication: BIPOLAR I DISORDER
     Dosage: 20 MG; QD; PO, PO, PO, 40 MG; QD; PO
     Route: 048
     Dates: start: 20100501, end: 20101101
  5. GEODON [Suspect]
     Indication: MYALGIA
     Dosage: 20 MG; QD; PO, PO, PO, 40 MG; QD; PO
     Route: 048
     Dates: start: 20100501, end: 20101101
  6. GEODON [Suspect]
     Indication: BIPOLAR DISORDER
     Dosage: 20 MG; QD; PO, PO, PO, 40 MG; QD; PO
     Route: 048
     Dates: start: 20090801
  7. GEODON [Suspect]
     Indication: PSYCHOTIC DISORDER
     Dosage: 20 MG; QD; PO, PO, PO, 40 MG; QD; PO
     Route: 048
     Dates: start: 20090801
  8. GEODON [Suspect]
     Indication: BIPOLAR I DISORDER
     Dosage: 20 MG; QD; PO, PO, PO, 40 MG; QD; PO
     Route: 048
     Dates: start: 20090801
  9. GEODON [Suspect]
     Indication: MYALGIA
     Dosage: 20 MG; QD; PO, PO, PO, 40 MG; QD; PO
     Route: 048
     Dates: start: 20090801
  10. GEODON [Suspect]
     Indication: BIPOLAR DISORDER
     Dosage: 20 MG; QD; PO, PO, PO, 40 MG; QD; PO
     Route: 048
     Dates: start: 20080101, end: 20090101
  11. GEODON [Suspect]
     Indication: PSYCHOTIC DISORDER
     Dosage: 20 MG; QD; PO, PO, PO, 40 MG; QD; PO
     Route: 048
     Dates: start: 20080101, end: 20090101
  12. GEODON [Suspect]
     Indication: BIPOLAR I DISORDER
     Dosage: 20 MG; QD; PO, PO, PO, 40 MG; QD; PO
     Route: 048
     Dates: start: 20080101, end: 20090101
  13. GEODON [Suspect]
     Indication: MYALGIA
     Dosage: 20 MG; QD; PO, PO, PO, 40 MG; QD; PO
     Route: 048
     Dates: start: 20080101, end: 20090101
  14. LAMICTAL [Concomitant]
  15. SERAX [Concomitant]
  16. ZYPREXA [Concomitant]
  17. VALPROIC ACID [Concomitant]
  18. CLONAZEPAM [Concomitant]
  19. SEROQUEL [Suspect]
     Indication: BIPOLAR I DISORDER
     Dosage: 80 MG; QD
     Dates: start: 20090101, end: 20090101
  20. SEROQUEL [Suspect]
     Indication: BIPOLAR I DISORDER
     Dosage: 80 MG; QD
     Dates: start: 20090801, end: 20090801
  21. SEROQUEL [Suspect]
     Indication: BIPOLAR I DISORDER
     Dosage: 80 MG; QD
     Dates: start: 20100101
  22. INVEGA [Concomitant]
  23. XANAX [Concomitant]

REACTIONS (5)
  - UNDERDOSE [None]
  - FEELING ABNORMAL [None]
  - TONGUE DISORDER [None]
  - INAPPROPRIATE SCHEDULE OF DRUG ADMINISTRATION [None]
  - HEART RATE INCREASED [None]
